FAERS Safety Report 16422292 (Version 1)
Quarter: 2019Q2

REPORT INFORMATION
  Report Type: Spontaneous
  Country: CA (occurrence: CA)
  Receive Date: 20190612
  Receipt Date: 20190612
  Transmission Date: 20190711
  Serious: Yes (Other)
  Sender: FDA-Public Use
  Company Number: CA-TEVA-2019-CA-1062677

PATIENT
  Age: 14 Year
  Sex: Female

DRUGS (1)
  1. TOBRAMYCIN. [Suspect]
     Active Substance: TOBRAMYCIN
     Indication: CYSTIC FIBROSIS
     Dosage: 224 MILLIGRAM DAILY;
     Route: 055

REACTIONS (2)
  - Dysphonia [Recovered/Resolved]
  - Cough [Recovered/Resolved]
